FAERS Safety Report 16214432 (Version 2)
Quarter: 2019Q4

REPORT INFORMATION
  Report Type: Spontaneous
  Country: US (occurrence: US)
  Receive Date: 20190418
  Receipt Date: 20191023
  Transmission Date: 20200122
  Serious: Yes (Death, Other)
  Sender: FDA-Public Use
  Company Number: US-ASTRAZENECA-2018SF48085

PATIENT
  Sex: Female

DRUGS (16)
  1. DESONIDE. [Concomitant]
     Active Substance: DESONIDE
  2. ETODOLAC. [Concomitant]
     Active Substance: ETODOLAC
  3. LIPITOR [Concomitant]
     Active Substance: ATORVASTATIN CALCIUM
  4. LOPRESSOR [Concomitant]
     Active Substance: METOPROLOL TARTRATE
  5. XOPENEX [Concomitant]
     Active Substance: LEVALBUTEROL HYDROCHLORIDE
  6. FUROSEMIDE. [Concomitant]
     Active Substance: FUROSEMIDE
  7. LEVOFLOXACIN. [Concomitant]
     Active Substance: LEVOFLOXACIN
  8. SINGULAIR [Concomitant]
     Active Substance: MONTELUKAST SODIUM
  9. NEXIUM [Suspect]
     Active Substance: ESOMEPRAZOLE MAGNESIUM
     Indication: DYSPEPSIA
     Dosage: GENERIC
     Route: 048
  10. BYETTA [Concomitant]
     Active Substance: EXENATIDE
  11. LEVAQUIN [Concomitant]
     Active Substance: LEVOFLOXACIN
  12. JANUVIA [Concomitant]
     Active Substance: SITAGLIPTIN PHOSPHATE
  13. NEXIUM [Suspect]
     Active Substance: ESOMEPRAZOLE MAGNESIUM
     Indication: DYSPEPSIA
     Route: 048
  14. CALCIUM [Concomitant]
     Active Substance: CALCIUM
  15. FLUTICASONE. [Concomitant]
     Active Substance: FLUTICASONE
  16. ADVAIR HFA [Concomitant]
     Active Substance: FLUTICASONE PROPIONATE\SALMETEROL XINAFOATE

REACTIONS (6)
  - Acute kidney injury [Unknown]
  - Rebound acid hypersecretion [Unknown]
  - Cardiac failure congestive [Fatal]
  - Coronary artery disease [Fatal]
  - Renal failure [Unknown]
  - Chronic kidney disease [Unknown]
